FAERS Safety Report 24641138 (Version 1)
Quarter: 2024Q4

REPORT INFORMATION
  Report Type: Spontaneous
  Country: US (occurrence: None)
  Receive Date: 20241119
  Receipt Date: 20241119
  Transmission Date: 20250115
  Serious: Yes (Hospitalization)
  Sender: Public
  Company Number: None

PATIENT
  Age: 62 Year
  Sex: Male

DRUGS (5)
  1. AMBRISENTAN [Suspect]
     Active Substance: AMBRISENTAN
     Indication: Pulmonary arterial hypertension
     Dosage: FREQUENCY : DAILY;?
     Route: 048
     Dates: start: 201908
  2. WINREVAIR [Concomitant]
     Active Substance: SOTATERCEPT-CSRK
  3. FLOLAN STERILE DILUENT [Concomitant]
  4. TREPROSTINIL [Concomitant]
     Active Substance: TREPROSTINIL
  5. SILDENAILF CITRATE [Concomitant]

REACTIONS (3)
  - COVID-19 [None]
  - Complication associated with device [None]
  - Post vaccination syndrome [None]

NARRATIVE: CASE EVENT DATE: 20231117
